FAERS Safety Report 5200187-7 (Version None)
Quarter: 2007Q1

REPORT INFORMATION
  Report Type: 
  Country: None (occurrence: None)
  Receive Date: 20070103
  Receipt Date: 20061221
  Transmission Date: 20070707
  Serious: Yes (Hospitalization, Other)
  Sender: FDA-Public Use
  Company Number: 232827

PATIENT
  Age: 74 Year
  Sex: Male

DRUGS (10)
  1. RITUXAN [Suspect]
     Indication: RHEUMATOID ARTHRITIS
     Dosage: 1000 MG, UNK, INTRAVENOUS
     Route: 042
     Dates: start: 20061005
  2. ARAVA [Suspect]
     Indication: RHEUMATOID ARTHRITIS
     Dosage: 20 MG, QD,
     Dates: start: 20000101, end: 20061012
  3. LISINOPRIL [Concomitant]
  4. ATENOLOL [Concomitant]
  5. ETODOLAC [Concomitant]
  6. FINASTERIDE [Concomitant]
  7. FUROSEMIDE [Concomitant]
  8. OMEPRAZOLE [Concomitant]
  9. TAMSULOSIN (TAMSULOSIN HYDROCHLORIDE) [Concomitant]
  10. TYLENOL #3 (UNITED STATES) (ACETAMINOPHEN CODEINE PHOSPHATE) [Concomitant]

REACTIONS (4)
  - ALANINE AMINOTRANSFERASE INCREASED [None]
  - ANOREXIA [None]
  - ASPARTATE AMINOTRANSFERASE INCREASED [None]
  - FATIGUE [None]
